FAERS Safety Report 6347300-6 (Version None)
Quarter: 2009Q3

REPORT INFORMATION
  Report Type: 
  Country: None (occurrence: None)
  Receive Date: 20090910
  Receipt Date: 20090901
  Transmission Date: 20100115
  Serious: Yes (Hospitalization, Other)
  Sender: FDA-Public Use
  Company Number: PHEH2008US03185

PATIENT
  Sex: Female

DRUGS (9)
  1. ZOMETA [Suspect]
     Indication: RESORPTION BONE INCREASED
     Dosage: 4 MG, UNK
  2. CARBOPLATIN [Concomitant]
  3. TAXOTERE [Concomitant]
  4. HERCEPTIN [Concomitant]
  5. BENADRYL ^ACHE^ [Concomitant]
  6. TYLENOL (CAPLET) [Concomitant]
  7. ARANESP [Concomitant]
  8. DECADRON                                /CAN/ [Concomitant]
  9. PAXIL [Concomitant]

REACTIONS (39)
  - ABDOMINAL PAIN UPPER [None]
  - ANAEMIA [None]
  - ANXIETY [None]
  - BONE DISORDER [None]
  - COLITIS [None]
  - DIARRHOEA [None]
  - DYSARTHRIA [None]
  - DYSPLASIA [None]
  - EMOTIONAL DISTRESS [None]
  - EMPHYSEMA [None]
  - FACIAL PALSY [None]
  - HALLUCINATION [None]
  - HEADACHE [None]
  - HEMIPLEGIA [None]
  - HEPATIC ENZYME INCREASED [None]
  - HYPERCHOLESTEROLAEMIA [None]
  - HYPOAESTHESIA [None]
  - HYSTEROSALPINGO-OOPHORECTOMY [None]
  - INFECTION [None]
  - INJURY [None]
  - MEMORY IMPAIRMENT [None]
  - MUSCLE SPASMS [None]
  - OSTEOARTHRITIS [None]
  - OSTEONECROSIS [None]
  - PAIN [None]
  - PAIN IN JAW [None]
  - PANCYTOPENIA [None]
  - PARAESTHESIA [None]
  - PHYSICAL DISABILITY [None]
  - REFLUX OESOPHAGITIS [None]
  - RENAL PAIN [None]
  - SALIVARY GLAND ENLARGEMENT [None]
  - SCAR [None]
  - SINUSITIS [None]
  - SUICIDAL IDEATION [None]
  - TOOTHACHE [None]
  - TRISMUS [None]
  - WALKING AID USER [None]
  - WEIGHT INCREASED [None]
